FAERS Safety Report 15653550 (Version 1)
Quarter: 2018Q4

REPORT INFORMATION
  Report Type: Spontaneous
  Country: CN (occurrence: CN)
  Receive Date: 20181124
  Receipt Date: 20181124
  Transmission Date: 20190205
  Serious: Yes (Death, Hospitalization, Other)
  Sender: FDA-Public Use
  Company Number: CN-ACCORD-092880

PATIENT
  Age: 20 Year
  Sex: Male

DRUGS (5)
  1. PIRARUBICIN [Suspect]
     Active Substance: PIRARUBICIN
     Indication: ACUTE LYMPHOCYTIC LEUKAEMIA
     Dosage: 3 COURSES OF CHEMOTHERAPY.
     Dates: start: 201709
  2. VINCRISTINE [Suspect]
     Active Substance: VINCRISTINE
     Indication: ACUTE LYMPHOCYTIC LEUKAEMIA
     Dosage: 3 COURSES OF CHEMOTHERAPY.
     Dates: start: 201709
  3. CYTARABINE/CYTARABINE HYDROCHLORIDE/CYTARABINE OCFOSFATE [Suspect]
     Active Substance: CYTARABINE
     Indication: ACUTE LYMPHOCYTIC LEUKAEMIA
     Dosage: 3 COURSES OF CHEMOTHERAPY
     Dates: start: 201709
  4. METHOTREXATE. [Suspect]
     Active Substance: METHOTREXATE
     Indication: ACUTE LYMPHOCYTIC LEUKAEMIA
     Dosage: 3 COURSES OF CHEMOTHERAPY
     Dates: start: 201709
  5. DEXAMETHASONE. [Suspect]
     Active Substance: DEXAMETHASONE
     Indication: ACUTE LYMPHOCYTIC LEUKAEMIA
     Dosage: 3 COURSES OF CHEMOTHERAPY
     Dates: start: 201709

REACTIONS (4)
  - Rhabdomyolysis [Unknown]
  - Vision blurred [Unknown]
  - Multiple organ dysfunction syndrome [Fatal]
  - Disease progression [Fatal]

NARRATIVE: CASE EVENT DATE: 201712
